FAERS Safety Report 18953068 (Version 1)
Quarter: 2021Q1

REPORT INFORMATION
  Report Type: Spontaneous
  Country: US (occurrence: US)
  Receive Date: 20210301
  Receipt Date: 20210301
  Transmission Date: 20210420
  Serious: Yes (Other)
  Sender: FDA-Public Use
  Company Number: US-ELI_LILLY_AND_COMPANY-US202102010343

PATIENT
  Sex: Female

DRUGS (1)
  1. TALTZ [Suspect]
     Active Substance: IXEKIZUMAB
     Indication: PSORIASIS
     Dosage: 80 MG, UNKNOWN
     Route: 058
     Dates: start: 2017

REACTIONS (1)
  - Breast cancer [Not Recovered/Not Resolved]
